FAERS Safety Report 15388093 (Version 5)
Quarter: 2025Q3

REPORT INFORMATION
  Report Type: Spontaneous
  Country: EU (occurrence: EU)
  Receive Date: 20180915
  Receipt Date: 20250718
  Transmission Date: 20251021
  Serious: Yes (Other)
  Sender: AUROBINDO
  Company Number: EU-AUROBINDO-AUR-APL-2018-045640

PATIENT
  Age: 87 Year
  Sex: Female

DRUGS (8)
  1. LAMIVUDINE [Suspect]
     Active Substance: LAMIVUDINE
     Indication: HIV infection
     Route: 065
     Dates: start: 2004
  2. TENOFOVIR [Suspect]
     Active Substance: TENOFOVIR
     Indication: HIV-2 infection
     Route: 065
     Dates: start: 2004
  3. TENOFOVIR [Suspect]
     Active Substance: TENOFOVIR
     Indication: HIV infection
  4. ZIDOVUDINE [Suspect]
     Active Substance: ZIDOVUDINE
     Indication: HIV infection
     Route: 065
     Dates: start: 2004
  5. ATAZANAVIR\RITONAVIR [Suspect]
     Active Substance: ATAZANAVIR\RITONAVIR
     Indication: HIV-2 infection
     Route: 065
     Dates: start: 2004
  6. ATAZANAVIR\RITONAVIR [Suspect]
     Active Substance: ATAZANAVIR\RITONAVIR
     Indication: HIV infection
  7. LOPINAVIR\RITONAVIR [Suspect]
     Active Substance: LOPINAVIR\RITONAVIR
     Indication: HIV-2 infection
     Route: 065
     Dates: start: 2004
  8. VIREAD [Suspect]
     Active Substance: TENOFOVIR DISOPROXIL FUMARATE
     Indication: HIV infection
     Route: 065

REACTIONS (3)
  - Chronic kidney disease [Unknown]
  - Off label use [Recovered/Resolved]
  - Inappropriate schedule of product administration [Unknown]
